FAERS Safety Report 7936841-3 (Version None)
Quarter: 2011Q4

REPORT INFORMATION
  Report Type: 
  Country: None (occurrence: None)
  Receive Date: 20111123
  Receipt Date: 20111007
  Transmission Date: 20120403
  Serious: Yes (Hospitalization)
  Sender: FDA-Public Use
  Company Number: US-ROCHE-1001373

PATIENT
  Sex: Female
  Weight: 74.2 kg

DRUGS (2)
  1. AVASTIN [Suspect]
     Indication: METASTATIC MALIGNANT MELANOMA
     Dosage: DOSE,ROUTE AND FREQUENCY:UNKNOWN,LAST DOSE:09 SEP 2011
     Dates: start: 20110728
  2. IPILIMUMAB [Suspect]
     Indication: METASTATIC MALIGNANT MELANOMA
     Dosage: LAST DOSE:09 SEP 2011

REACTIONS (1)
  - PLEURAL EFFUSION [None]
